FAERS Safety Report 9827668 (Version 1)
Quarter: 2014Q1

REPORT INFORMATION
  Report Type: Report from Study
  Country: AU (occurrence: AU)
  Receive Date: 20140117
  Receipt Date: 20140117
  Transmission Date: 20141002
  Serious: Yes (Death)
  Sender: FDA-Public Use
  Company Number: AU-PFIZER INC-2014012896

PATIENT
  Age: 42 Year
  Sex: Male

DRUGS (5)
  1. ALPRAZOLAM [Suspect]
     Dosage: UNK
  2. MORPHINE HCL [Suspect]
     Dosage: UNK
  3. OLANZAPINE [Suspect]
     Dosage: UNK
  4. DULOXETINE [Suspect]
     Dosage: UNK
  5. CODEINE [Suspect]
     Dosage: UNK

REACTIONS (1)
  - Toxicity to various agents [Fatal]
